FAERS Safety Report 6328643-9 (Version None)
Quarter: 2009Q3

REPORT INFORMATION
  Report Type: 
  Country: None (occurrence: None)
  Receive Date: 20090825
  Receipt Date: 20090825
  Transmission Date: 20100115
  Serious: Yes (Other)
  Sender: FDA-Public Use
  Company Number: None

PATIENT
  Age: 58 Year
  Sex: Male
  Weight: 84.369 kg

DRUGS (1)
  1. FINASTERIDE [Suspect]
     Indication: PROSTATE CANCER
     Dosage: 5 MG QD PO
     Route: 048
     Dates: start: 20000101, end: 20010101

REACTIONS (2)
  - PRODUCT SUBSTITUTION ISSUE [None]
  - PROSTATIC SPECIFIC ANTIGEN ABNORMAL [None]
